FAERS Safety Report 10591710 (Version 2)
Quarter: 2015Q1

REPORT INFORMATION
  Report Type: Other
  Country: IT (occurrence: IT)
  Receive Date: 20141118
  Receipt Date: 20150216
  Transmission Date: 20150720
  Serious: Yes (Other)
  Sender: FDA-Public Use
  Company Number: IT-MYLANLABS-2014M1010299

PATIENT

DRUGS (3)
  1. VERTISERC [Suspect]
     Active Substance: BETAHISTINE HYDROCHLORIDE
     Indication: DIZZINESS
     Dates: start: 20140915, end: 20140915
  2. IBUPROFEN. [Suspect]
     Active Substance: IBUPROFEN
     Indication: HEADACHE
     Dates: start: 20140915, end: 20140915
  3. MINULET [Concomitant]
     Active Substance: ETHINYL ESTRADIOL\GESTODENE
     Indication: PRODUCT USED FOR UNKNOWN INDICATION

REACTIONS (3)
  - Erythema [Recovering/Resolving]
  - Angioedema [Recovering/Resolving]
  - Urticaria [Recovering/Resolving]

NARRATIVE: CASE EVENT DATE: 20140915
